FAERS Safety Report 6355765-9 (Version None)
Quarter: 2009Q3

REPORT INFORMATION
  Report Type: 
  Country: None (occurrence: None)
  Receive Date: 20090911
  Receipt Date: 20090911
  Transmission Date: 20100115
  Serious: Yes (Other)
  Sender: FDA-Public Use
  Company Number: None

PATIENT
  Age: 82 Year
  Sex: Female
  Weight: 63.5036 kg

DRUGS (1)
  1. ALENDRONATE SODIUM TABLETS US [Suspect]
     Indication: BONE DISORDER
     Dosage: 1 TABLET EVERY WEEK  4 OR 5 YEARS

REACTIONS (2)
  - BONE PAIN [None]
  - MYALGIA [None]
